FAERS Safety Report 5638303-5 (Version None)
Quarter: 2008Q1

REPORT INFORMATION
  Report Type: 
  Country: None (occurrence: None)
  Receive Date: 20080226
  Receipt Date: 20080214
  Transmission Date: 20080703
  Serious: Yes (Hospitalization)
  Sender: FDA-Public Use
  Company Number: US-BAYER-200810648BCC

PATIENT
  Age: 67 Year
  Sex: Female
  Weight: 90 kg

DRUGS (7)
  1. ASPIRIN [Suspect]
     Indication: CARDIOVASCULAR EVENT PROPHYLAXIS
     Dosage: TOTAL DAILY DOSE: 81 MG  UNIT DOSE: 81 MG
     Route: 048
     Dates: start: 20020101
  2. HYDROCODONE BITARTRATE [Concomitant]
  3. FUROSEMIDE [Concomitant]
  4. LIPITOR [Concomitant]
  5. METFORMIN HCL [Concomitant]
  6. KLOR-CONALTACE [Concomitant]
  7. GLIMEPIRIDE [Concomitant]

REACTIONS (2)
  - ARRHYTHMIA [None]
  - MALAISE [None]
